FAERS Safety Report 7552545-3 (Version None)
Quarter: 2011Q2

REPORT INFORMATION
  Report Type: 
  Country: None (occurrence: None)
  Receive Date: 20110616
  Receipt Date: 20110609
  Transmission Date: 20111010
  Serious: Yes (Disabling)
  Sender: FDA-Public Use
  Company Number: US-GENZYME-POMP-1001603

PATIENT
  Sex: Male
  Weight: 89 kg

DRUGS (1)
  1. LUMIZYME [Suspect]
     Indication: GLYCOGEN STORAGE DISEASE TYPE II
     Dosage: 38 MG/KG, Q2W
     Route: 042

REACTIONS (2)
  - FATIGUE [None]
  - ASTHENIA [None]
